FAERS Safety Report 24887643 (Version 1)
Quarter: 2025Q1

REPORT INFORMATION
  Report Type: Report from Study
  Country: US (occurrence: US)
  Receive Date: 20250127
  Receipt Date: 20250127
  Transmission Date: 20250408
  Serious: Yes (Other)
  Sender: ACADIA PHARMACEUTICALS
  Company Number: US-ACADIA PHARMACEUTICALS INC.-ACA-2025-PIM-000559

PATIENT
  Age: 77 Year
  Sex: Female

DRUGS (23)
  1. NUPLAZID [Suspect]
     Active Substance: PIMAVANSERIN TARTRATE
     Indication: Parkinson^s disease
     Dosage: 34 MILLIGRAM, QD
     Route: 048
     Dates: start: 20240624
  2. ASPIRIN [Concomitant]
     Active Substance: ASPIRIN
  3. ATORVASTATIN [Concomitant]
     Active Substance: ATORVASTATIN
  4. BACLOFEN [Concomitant]
     Active Substance: BACLOFEN
  5. BUDESONIDE [Concomitant]
     Active Substance: BUDESONIDE
  6. CARBIDOPA\LEVODOPA [Concomitant]
     Active Substance: CARBIDOPA\LEVODOPA
  7. FINGOLIMOD [Concomitant]
     Active Substance: FINGOLIMOD
  8. FLUOXETINE [Concomitant]
     Active Substance: FLUOXETINE HYDROCHLORIDE
  9. FLUTICASONE [Concomitant]
     Active Substance: FLUTICASONE
  10. FORMOTEROL [Concomitant]
     Active Substance: FORMOTEROL
  11. GABAPENTIN [Concomitant]
     Active Substance: GABAPENTIN
  12. LATANOPROST [Concomitant]
     Active Substance: LATANOPROST
  13. LEVOTHYROXINE [Concomitant]
     Active Substance: LEVOTHYROXINE
  14. MELATONIN [Concomitant]
     Active Substance: MELATONIN
  15. ALBUTEROL [Concomitant]
     Active Substance: ALBUTEROL
  16. VITAMIN D3 [Concomitant]
     Active Substance: CHOLECALCIFEROL
  17. ROPINIROLE [Concomitant]
     Active Substance: ROPINIROLE
  18. BIOFREEZE [Concomitant]
     Active Substance: MENTHOL
  19. CRANBERRY [ASCORBIC ACID;TOCOPHEROL;VACCINIUM MACROCARPON] [Concomitant]
  20. DEPAKOTE [Concomitant]
     Active Substance: DIVALPROEX SODIUM
  21. AZELASTINE [Concomitant]
     Active Substance: AZELASTINE
  22. TYLENOL [Concomitant]
     Active Substance: ACETAMINOPHEN
  23. MILK OF MAGNESIA [Concomitant]
     Active Substance: MAGNESIUM HYDROXIDE

REACTIONS (7)
  - Delirium [Recovered/Resolved]
  - Urinary tract infection [Recovered/Resolved]
  - Anxiety [Recovered/Resolved]
  - Personality change [Recovered/Resolved]
  - Paranoid personality disorder [Recovered/Resolved]
  - Aggression [Recovered/Resolved]
  - Insomnia [Recovered/Resolved]

NARRATIVE: CASE EVENT DATE: 20241217
